FAERS Safety Report 11073951 (Version 5)
Quarter: 2016Q1

REPORT INFORMATION
  Report Type: Spontaneous
  Country: CA (occurrence: CA)
  Receive Date: 20150429
  Receipt Date: 20160225
  Transmission Date: 20160525
  Serious: Yes (Other)
  Sender: FDA-Public Use
  Company Number: CA-ROCHE-1512211

PATIENT
  Age: 52 Year
  Sex: Male

DRUGS (5)
  1. XOLAIR [Suspect]
     Active Substance: OMALIZUMAB
     Route: 058
     Dates: start: 20060816
  2. XOLAIR [Suspect]
     Active Substance: OMALIZUMAB
     Route: 058
     Dates: start: 20160218
  3. SYMBICORT [Concomitant]
     Active Substance: BUDESONIDE\FORMOTEROL FUMARATE DIHYDRATE
  4. XOLAIR [Suspect]
     Active Substance: OMALIZUMAB
     Indication: ASTHMA
     Route: 058
     Dates: start: 20051024
  5. PREDNISONE. [Concomitant]
     Active Substance: PREDNISONE

REACTIONS (17)
  - Productive cough [Recovered/Resolved]
  - Gastrooesophageal reflux disease [Unknown]
  - Pyrexia [Recovered/Resolved]
  - Headache [Unknown]
  - Night sweats [Unknown]
  - Presyncope [Recovering/Resolving]
  - Nasopharyngitis [Recovered/Resolved]
  - Miliaria [Unknown]
  - Fatigue [Unknown]
  - Alcohol intolerance [Unknown]
  - Wrist fracture [Unknown]
  - Nasal congestion [Recovered/Resolved]
  - Haemoptysis [Unknown]
  - Hypotension [Unknown]
  - Cough [Unknown]
  - Hypertension [Unknown]
  - Dyspnoea [Recovered/Resolved]

NARRATIVE: CASE EVENT DATE: 20100703
